FAERS Safety Report 14600933 (Version 1)
Quarter: 2018Q1

REPORT INFORMATION
  Report Type: Spontaneous
  Country: US (occurrence: US)
  Receive Date: 20180304
  Receipt Date: 20180304
  Transmission Date: 20180509
  Serious: Yes (Life-Threatening, Hospitalization)
  Sender: FDA-Public Use
  Company Number: None

PATIENT
  Age: 60 Year
  Sex: Male

DRUGS (1)
  1. RITUXIMAB. [Suspect]
     Active Substance: RITUXIMAB
     Indication: LYMPHOMA
     Route: 042
     Dates: start: 20171130, end: 20171130

REACTIONS (4)
  - Lymphoma [None]
  - Platelet count decreased [None]
  - Disease progression [None]
  - Hypersensitivity [None]

NARRATIVE: CASE EVENT DATE: 20171130
